FAERS Safety Report 22138916 (Version 11)
Quarter: 2023Q4

REPORT INFORMATION
  Report Type: Report from Study
  Country: US (occurrence: US)
  Receive Date: 20230327
  Receipt Date: 20231116
  Transmission Date: 20240109
  Serious: No
  Sender: FDA-Public Use
  Company Number: US-002147023-NVSC2023US063960

PATIENT
  Age: 21 Year
  Sex: Male

DRUGS (2)
  1. KESIMPTA [Suspect]
     Active Substance: OFATUMUMAB
     Indication: Product used for unknown indication
     Dosage: UNK
     Route: 065
     Dates: start: 20230309
  2. KESIMPTA [Suspect]
     Active Substance: OFATUMUMAB
     Dosage: SECOND INJECTION
     Route: 065
     Dates: start: 20230317

REACTIONS (10)
  - Muscle twitching [Recovered/Resolved]
  - Muscular weakness [Unknown]
  - Pain [Unknown]
  - Device issue [Unknown]
  - Abdominal pain upper [Unknown]
  - Dizziness [Unknown]
  - Diarrhoea [Unknown]
  - Nausea [Unknown]
  - Myalgia [Unknown]
  - Fatigue [Unknown]

NARRATIVE: CASE EVENT DATE: 20230317
